FAERS Safety Report 5775455-0 (Version None)
Quarter: 2008Q2

REPORT INFORMATION
  Report Type: 
  Country: None (occurrence: None)
  Receive Date: 20080617
  Receipt Date: 20080606
  Transmission Date: 20081010
  Serious: Yes (Other)
  Sender: FDA-Public Use
  Company Number: PHNU2008DE00969

PATIENT
  Sex: Female

DRUGS (4)
  1. CYCLOSPORINE [Suspect]
     Indication: MUSCULAR WEAKNESS
  2. MESTINON [Concomitant]
  3. ESTRAMON [Concomitant]
  4. NOVAMINSULFON [Concomitant]

REACTIONS (1)
  - PORTAL VEIN OCCLUSION [None]
